FAERS Safety Report 24740058 (Version 2)
Quarter: 2025Q3

REPORT INFORMATION
  Report Type: Report from Study
  Country: US (occurrence: US)
  Receive Date: 20241216
  Receipt Date: 20250802
  Transmission Date: 20251020
  Serious: Yes (Death, Other)
  Sender: ALEXION PHARMACEUTICALS
  Company Number: US-AstraZeneca-CH-00767831A

PATIENT
  Age: 85 Year
  Sex: Female
  Weight: 96 kg

DRUGS (1)
  1. ACALABRUTINIB [Suspect]
     Active Substance: ACALABRUTINIB
     Indication: Chronic lymphocytic leukaemia refractory
     Dosage: 100 MILLIGRAM, BID
     Dates: start: 20240821

REACTIONS (1)
  - Death [Fatal]

NARRATIVE: CASE EVENT DATE: 20241212
